FAERS Safety Report 5831227-X (Version None)
Quarter: 2008Q3

REPORT INFORMATION
  Report Type: 
  Country: None (occurrence: None)
  Receive Date: 20080801
  Receipt Date: 20070824
  Transmission Date: 20090109
  Serious: No
  Sender: FDA-Public Use
  Company Number: US-BRISTOL-MYERS SQUIBB COMPANY-13889183

PATIENT
  Age: 67 Year
  Sex: Male
  Weight: 75 kg

DRUGS (3)
  1. COUMADIN [Suspect]
     Route: 048
  2. ZOCOR [Concomitant]
  3. ZETIA [Concomitant]

REACTIONS (1)
  - INTERNATIONAL NORMALISED RATIO DECREASED [None]
